FAERS Safety Report 19138270 (Version 2)
Quarter: 2021Q3

REPORT INFORMATION
  Report Type: Spontaneous
  Country: US (occurrence: US)
  Receive Date: 20210415
  Receipt Date: 20210806
  Transmission Date: 20211014
  Serious: No
  Sender: FDA-Public Use
  Company Number: US-SA-2021SA122131

PATIENT
  Sex: Male

DRUGS (2)
  1. DUPIXENT [Suspect]
     Active Substance: DUPILUMAB
     Indication: DERMATITIS ATOPIC
     Dosage: 300 MG, QOW
     Route: 058
     Dates: start: 20200305
  2. DUPIXENT [Suspect]
     Active Substance: DUPILUMAB
     Indication: ACARODERMATITIS

REACTIONS (2)
  - Asthma [Unknown]
  - Drug ineffective for unapproved indication [Unknown]
